FAERS Safety Report 21927447 (Version 4)
Quarter: 2023Q1

REPORT INFORMATION
  Report Type: Report from Study
  Country: CH (occurrence: CH)
  Receive Date: 20230130
  Receipt Date: 20230213
  Transmission Date: 20230417
  Serious: Yes (Hospitalization)
  Sender: FDA-Public Use
  Company Number: CH-ABBVIE-4286640

PATIENT
  Age: 84 Year
  Sex: Female

DRUGS (10)
  1. CARBIDOPA\LEVODOPA [Suspect]
     Active Substance: CARBIDOPA\LEVODOPA
     Indication: Parkinson^s disease
     Dosage: MD 9.5 ML, CRD 4.7 ML/H, ED 1.0 ML?FREQUENCY TEXT: 16H THERAPY
     Route: 050
     Dates: start: 20221103, end: 20221107
  2. CARBIDOPA\LEVODOPA [Suspect]
     Active Substance: CARBIDOPA\LEVODOPA
     Dosage: MD 9.5 ML, CRD 4.3 ML/H, ED 1.0 ML?FREQUENCY TEXT: 16H THERAPY
     Route: 050
     Dates: start: 20221102, end: 20221103
  3. CARBIDOPA\LEVODOPA [Suspect]
     Active Substance: CARBIDOPA\LEVODOPA
     Dosage: MD 9.5 ML, CRD 4.7 ML/H, ED 1.5 ML?FREQUENCY TEXT: 16H THERAPY
     Route: 050
     Dates: start: 20221107, end: 20221216
  4. CARBIDOPA\LEVODOPA [Suspect]
     Active Substance: CARBIDOPA\LEVODOPA
     Dosage: MD 6.5 ML, CRD 4.3 ML/H, ED 1.0 ML?FREQUENCY TEXT: 16H THERAPY
     Route: 050
     Dates: start: 20221101, end: 20221102
  5. CARBIDOPA\LEVODOPA [Suspect]
     Active Substance: CARBIDOPA\LEVODOPA
     Dosage: MD 5.0 ML, CRD 5.5 ML/H, CRN 3.0 ML/H, ED 1.5 ML?FREQUENCY TEXT: 24H THERAPY
     Route: 050
     Dates: start: 20230116, end: 20230120
  6. CARBIDOPA\LEVODOPA [Suspect]
     Active Substance: CARBIDOPA\LEVODOPA
     Dosage: MD 5.0 ML, CRD 5.8 ML/H, ED 1.5 ML?FREQUENCY TEXT: 16H THERAPY?LAST ADMIN DATE- JAN 2023
     Route: 050
     Dates: start: 20230120, end: 20230130
  7. CARBIDOPA\LEVODOPA [Suspect]
     Active Substance: CARBIDOPA\LEVODOPA
     Dosage: MD 6.5 ML, CRD 4.1 ML/H, ED 1.0 ML?FREQUENCY TEXT: 16H THERAPY
     Route: 050
     Dates: start: 20221031, end: 20221101
  8. CARBIDOPA\LEVODOPA [Suspect]
     Active Substance: CARBIDOPA\LEVODOPA
     Dosage: MD 5.0 ML, CRD 5.3 ML/H, CRN 3.0 ML/H, ED 1.5 ML?FREQUENCY TEXT: 24H THERAPY
     Route: 050
     Dates: start: 20230111, end: 20230116
  9. CARBIDOPA\LEVODOPA [Suspect]
     Active Substance: CARBIDOPA\LEVODOPA
     Dosage: MD 6.5 ML, CRD 5.3 ML/H, ED 1.5 ML?FREQUENCY TEXT: 16H THERAPY
     Route: 050
     Dates: start: 20221216, end: 20230111
  10. CARBIDOPA\LEVODOPA [Suspect]
     Active Substance: CARBIDOPA\LEVODOPA
     Dosage: MD 6.5 ML, CRD 5.6 ML/H, CRN 3.1 ML/H, ED 1.5 ML
     Dates: start: 20230130

REACTIONS (4)
  - Urinary tract infection [Not Recovered/Not Resolved]
  - Dysphagia [Not Recovered/Not Resolved]
  - Asthenia [Recovering/Resolving]
  - Hospitalisation [Not Recovered/Not Resolved]

NARRATIVE: CASE EVENT DATE: 20230101
